FAERS Safety Report 15369021 (Version 1)
Quarter: 2018Q3

REPORT INFORMATION
  Report Type: Spontaneous
  Country: BE (occurrence: BE)
  Receive Date: 20180911
  Receipt Date: 20180911
  Transmission Date: 20181010
  Serious: Yes (Other)
  Sender: FDA-Public Use
  Company Number: BE-BAXTER-2018BAX023106

PATIENT
  Age: 43 Year
  Sex: Male

DRUGS (9)
  1. CLONIDINE. [Concomitant]
     Active Substance: CLONIDINE
     Indication: SEDATION
     Route: 042
  2. OSELTAMIVIR [Concomitant]
     Active Substance: OSELTAMIVIR
     Indication: ANTIVIRAL TREATMENT
     Route: 065
  3. MIDAZOLAM [Concomitant]
     Active Substance: MIDAZOLAM HYDROCHLORIDE
     Indication: SEDATION
     Route: 042
  4. CLONIDINE. [Concomitant]
     Active Substance: CLONIDINE
     Indication: PRODUCT USED FOR UNKNOWN INDICATION
     Route: 042
  5. PROPOFOL. [Concomitant]
     Active Substance: PROPOFOL
     Indication: SEDATION
     Route: 042
  6. SEVOFLURANE BAXTER 100%, LIQUIDE POUR INHALATION PAR VAPEUR [Suspect]
     Active Substance: SEVOFLURANE
     Indication: SEDATION
     Dosage: END?TIDAL CONCENTRATION OF 1% VOL AND INJECTION RATE OF 10?14 ML/H
     Route: 055
  7. PROPOFOL. [Concomitant]
     Active Substance: PROPOFOL
     Indication: PRODUCT USED FOR UNKNOWN INDICATION
     Dosage: 1?1.5MG/KG/H
     Route: 065
  8. SUFENTANIL [Concomitant]
     Active Substance: SUFENTANIL
     Indication: SEDATION
     Dosage: UP TO 15 MCG/HR
     Route: 042
  9. KETAMINE [Concomitant]
     Active Substance: KETAMINE
     Indication: SEDATION
     Route: 042

REACTIONS (1)
  - Nephrogenic diabetes insipidus [Recovered/Resolved]
